FAERS Safety Report 9353435 (Version 2)
Quarter: 2013Q4

REPORT INFORMATION
  Report Type: Spontaneous
  Country: GB (occurrence: GB)
  Receive Date: 20130618
  Receipt Date: 20131016
  Transmission Date: 20140711
  Serious: Yes (Other)
  Sender: FDA-Public Use
  Company Number: GB-SANOFI-AVENTIS-2013SA059473

PATIENT
  Age: 26 Year
  Sex: Female

DRUGS (30)
  1. TRAMADOL HYDROCHLORIDE [Suspect]
     Indication: PAIN
     Route: 065
  2. TRAMADOL HYDROCHLORIDE [Suspect]
     Indication: MYALGIA
     Route: 065
  3. TRAMADOL HYDROCHLORIDE [Suspect]
     Indication: OSTEOPOROSIS
     Route: 065
  4. TRAMADOL HYDROCHLORIDE [Suspect]
     Indication: OSTEOARTHRITIS
     Route: 065
  5. TRAMADOL HYDROCHLORIDE [Suspect]
     Indication: RHEUMATOID ARTHRITIS
     Route: 065
  6. TRAMADOL HYDROCHLORIDE [Suspect]
     Indication: HYPERMOBILITY SYNDROME
     Route: 065
  7. CO-CODAMOL [Suspect]
     Indication: MYALGIA
     Route: 065
  8. CO-CODAMOL [Suspect]
     Indication: OSTEOPOROSIS
     Route: 065
  9. CO-CODAMOL [Suspect]
     Indication: OSTEOARTHRITIS
     Route: 065
  10. CO-CODAMOL [Suspect]
     Indication: RHEUMATOID ARTHRITIS
     Route: 065
  11. CO-CODAMOL [Suspect]
     Indication: HYPERMOBILITY SYNDROME
     Route: 065
  12. CO-CODAMOL [Suspect]
     Indication: PAIN
     Route: 065
  13. NAPROXEN [Suspect]
     Indication: PAIN
     Route: 065
  14. NAPROXEN [Suspect]
     Indication: MYALGIA
     Route: 065
  15. NAPROXEN [Suspect]
     Indication: OSTEOPOROSIS
     Route: 065
  16. NAPROXEN [Suspect]
     Indication: OSTEOARTHRITIS
     Route: 065
  17. NAPROXEN [Suspect]
     Indication: RHEUMATOID ARTHRITIS
     Route: 065
  18. NAPROXEN [Suspect]
     Indication: HYPERMOBILITY SYNDROME
     Route: 065
  19. DICLOFENAC [Suspect]
     Indication: HYPERMOBILITY SYNDROME
     Route: 065
  20. DICLOFENAC [Suspect]
     Indication: RHEUMATOID ARTHRITIS
     Route: 065
  21. DICLOFENAC [Suspect]
     Indication: OSTEOARTHRITIS
     Route: 065
  22. DICLOFENAC [Suspect]
     Indication: OSTEOPOROSIS
     Route: 065
  23. DICLOFENAC [Suspect]
     Indication: MYALGIA
     Route: 065
  24. DICLOFENAC [Suspect]
     Indication: PAIN
     Route: 065
  25. LEFLUNOMIDE [Suspect]
     Indication: PAIN
     Route: 065
  26. LEFLUNOMIDE [Suspect]
     Indication: RHEUMATOID ARTHRITIS
     Route: 065
  27. LEFLUNOMIDE [Suspect]
     Indication: HYPERMOBILITY SYNDROME
     Route: 065
  28. LEFLUNOMIDE [Suspect]
     Indication: OSTEOARTHRITIS
     Route: 065
  29. LEFLUNOMIDE [Suspect]
     Indication: OSTEOPOROSIS
     Route: 065
  30. LEFLUNOMIDE [Suspect]
     Indication: MYALGIA
     Route: 065

REACTIONS (2)
  - Suicidal ideation [Unknown]
  - Drug ineffective [Unknown]
